FAERS Safety Report 8356648-5 (Version None)
Quarter: 2012Q2

REPORT INFORMATION
  Report Type: 
  Country: None (occurrence: None)
  Receive Date: 20120514
  Receipt Date: 20120509
  Transmission Date: 20120825
  Serious: Yes (Other)
  Sender: FDA-Public Use
  Company Number: PHEH2012US009948

PATIENT
  Sex: Female

DRUGS (13)
  1. ETODOOACO [Concomitant]
  2. BACLOFEN [Concomitant]
  3. ASPIRIN [Concomitant]
  4. GABAPENTIN [Concomitant]
  5. VESICARE [Concomitant]
  6. CITALOPRAM [Concomitant]
  7. ANTIDEPRESSANTS [Concomitant]
  8. DIOVAN [Concomitant]
  9. VITAMIN D [Concomitant]
  10. GILENYA [Suspect]
     Indication: MULTIPLE SCLEROSIS
     Dosage: 0.5 MG, QD
     Route: 048
     Dates: start: 20120430
  11. TAMSULOSIN HCL [Concomitant]
  12. PROVIGIL [Concomitant]
  13. METHYLPHENIDATE [Concomitant]

REACTIONS (1)
  - ELECTROCARDIOGRAM ABNORMAL [None]
